FAERS Safety Report 8052477-0 (Version None)
Quarter: 2012Q1

REPORT INFORMATION
  Report Type: 
  Country: None (occurrence: None)
  Receive Date: 20120118
  Receipt Date: 20120112
  Transmission Date: 20120608
  Serious: Yes (Hospitalization, Other)
  Sender: FDA-Public Use
  Company Number: US-PFIZER INC-2012010470

PATIENT
  Sex: Male
  Weight: 82 kg

DRUGS (5)
  1. LYRICA [Suspect]
     Indication: NEURALGIA
     Dosage: UNK
     Route: 048
     Dates: start: 20111101, end: 20120108
  2. ACETAMINOPHEN [Concomitant]
     Indication: HYPERTENSION
     Dosage: UNK
  3. NEURONTIN [Suspect]
     Indication: NEURALGIA
     Dosage: UNK
     Dates: end: 20110101
  4. REQUIP [Suspect]
     Indication: RESTLESS LEGS SYNDROME
     Dosage: UNK
     Route: 048
     Dates: start: 20111101, end: 20120108
  5. REQUIP [Suspect]
     Indication: PARKINSON'S DISEASE

REACTIONS (16)
  - HYPERSOMNIA [None]
  - ASTHENIA [None]
  - SWELLING [None]
  - DRY MOUTH [None]
  - WEIGHT INCREASED [None]
  - URINARY TRACT INFECTION [None]
  - GRIP STRENGTH DECREASED [None]
  - FALL [None]
  - DRUG INEFFECTIVE [None]
  - CHEST PAIN [None]
  - MEMORY IMPAIRMENT [None]
  - BURNING SENSATION [None]
  - FATIGUE [None]
  - CARDIAC FAILURE CONGESTIVE [None]
  - DISTURBANCE IN ATTENTION [None]
  - DYSKINESIA [None]
